FAERS Safety Report 12189209 (Version 1)
Quarter: 2016Q1

REPORT INFORMATION
  Report Type: Report from Study
  Country: IT (occurrence: IT)
  Receive Date: 20160317
  Receipt Date: 20160317
  Transmission Date: 20160526
  Serious: Yes (Other)
  Sender: FDA-Public Use
  Company Number: IT-TEVA-643611ACC

PATIENT
  Sex: Female

DRUGS (3)
  1. LEXOTAN [Concomitant]
     Active Substance: BROMAZEPAM
     Route: 048
  2. VENTOLIN [Concomitant]
     Active Substance: ALBUTEROL SULFATE
     Indication: ASTHMA
     Route: 048
  3. COPAXONE [Suspect]
     Active Substance: GLATIRAMER ACETATE
     Indication: MULTIPLE SCLEROSIS
     Dosage: 20 MG/ML
     Dates: start: 2009

REACTIONS (5)
  - Sensation of foreign body [Not Recovered/Not Resolved]
  - Erythema [Not Recovered/Not Resolved]
  - Discomfort [Not Recovered/Not Resolved]
  - Apnoea [Not Recovered/Not Resolved]
  - Headache [Not Recovered/Not Resolved]
